FAERS Safety Report 21124123 (Version 1)
Quarter: 2022Q3

REPORT INFORMATION
  Report Type: Spontaneous
  Country: US (occurrence: US)
  Receive Date: 20220725
  Receipt Date: 20220725
  Transmission Date: 20221027
  Serious: No
  Sender: FDA-Public Use
  Company Number: US-NEUROCRINE BIOSCIENCES INC.-2022NBI04690

PATIENT

DRUGS (1)
  1. INGREZZA [Suspect]
     Active Substance: VALBENAZINE
     Indication: Tardive dyskinesia
     Dosage: 80 MILLIGRAM, QD (SAMPLE)
     Route: 048

REACTIONS (5)
  - Sleep terror [Unknown]
  - Musculoskeletal stiffness [Unknown]
  - Pain [Unknown]
  - Tremor [Unknown]
  - Gait disturbance [Unknown]
